FAERS Safety Report 7603363-9 (Version None)
Quarter: 2011Q3

REPORT INFORMATION
  Report Type: 
  Country: None (occurrence: None)
  Receive Date: 20110712
  Receipt Date: 20110704
  Transmission Date: 20111222
  Serious: Yes (Hospitalization)
  Sender: FDA-Public Use
  Company Number: PHHY2011FI28850

PATIENT
  Age: 69 Year
  Sex: Male

DRUGS (5)
  1. GLUCOSAMINE [Concomitant]
     Dosage: 1200 MG, UNK
     Route: 048
  2. ENTACAPONE [Suspect]
     Indication: PARKINSON'S DISEASE
     Dosage: 1400 MG, DAILY
     Route: 048
  3. CARBIDOPA + LEVODOPA [Suspect]
     Indication: PARKINSON'S DISEASE
     Dosage: 700 MG, DAILY
     Route: 048
  4. COHEMIN [Concomitant]
     Dosage: UNK UKN, UNK
     Route: 030
  5. STALEVO 100 [Suspect]
     Indication: PARKINSON'S DISEASE
     Dosage: 1100 MG, DAILY
     Dates: start: 20110218

REACTIONS (7)
  - SUICIDE ATTEMPT [None]
  - DRUG EFFECT DECREASED [None]
  - DRUG ADMINISTRATION ERROR [None]
  - FATIGUE [None]
  - TREMOR [None]
  - SLEEP DISORDER [None]
  - DIARRHOEA [None]
